FAERS Safety Report 9448311 (Version 1)
Quarter: 2013Q3

REPORT INFORMATION
  Report Type: Report from Study
  Country: CA (occurrence: CA)
  Receive Date: 20130808
  Receipt Date: 20130808
  Transmission Date: 20140515
  Serious: Yes (Hospitalization)
  Sender: FDA-Public Use
  Company Number: CA-ASTELLAS-2013US006232

PATIENT
  Age: 65 Year
  Sex: Male

DRUGS (3)
  1. TACROLIMUS MR4 CAPSULES [Suspect]
     Indication: RENAL TRANSPLANT
     Dosage: 2.5 MG, UID/QD
     Route: 048
     Dates: start: 20100206
  2. PREDNISONE [Concomitant]
     Indication: RENAL TRANSPLANT
     Dosage: UNK
     Route: 048
     Dates: start: 20100205
  3. CELLCEPT                           /01275102/ [Concomitant]
     Indication: RENAL TRANSPLANT
     Dosage: UNK
     Route: 048
     Dates: start: 20100205

REACTIONS (2)
  - Bile duct stone [Recovered/Resolved]
  - Sepsis [Recovered/Resolved]
